FAERS Safety Report 8843713 (Version 1)
Quarter: 2012Q4

REPORT INFORMATION
  Report Type: 
  Country: GR (occurrence: GR)
  Receive Date: 20121016
  Receipt Date: 20121016
  Transmission Date: 20130627
  Serious: Yes (Other)
  Sender: FDA-Public Use
  Company Number: GR-TEVA-363755ISR

PATIENT

DRUGS (1)
  1. MYCOPHENOLIC ACID [Suspect]
     Route: 048

REACTIONS (2)
  - Blood creatinine increased [Unknown]
  - Vasculitis [Unknown]
